FAERS Safety Report 24039767 (Version 4)
Quarter: 2024Q4

REPORT INFORMATION
  Report Type: Spontaneous
  Country: US (occurrence: US)
  Receive Date: 20240702
  Receipt Date: 20241008
  Transmission Date: 20250114
  Serious: Yes (Other)
  Sender: RANBAXY
  Company Number: US-SUN PHARMACEUTICAL INDUSTRIES LTD-2024R1-453133

PATIENT
  Sex: Male

DRUGS (4)
  1. ODOMZO [Suspect]
     Active Substance: SONIDEGIB
     Indication: Basal cell carcinoma
     Dosage: 1 DOSAGE FORM (ONE CAPSULE BY MOUTH ON AN EMPTY STOMACH)
     Route: 048
     Dates: start: 2024
  2. ODOMZO [Suspect]
     Active Substance: SONIDEGIB
     Dosage: 1 DOSAGE FORM, WEEKLY
     Route: 048
  3. ODOMZO [Suspect]
     Active Substance: SONIDEGIB
     Dosage: 1 DOSAGE FORM, WEEKLY
     Route: 048
     Dates: start: 20240521, end: 20240812
  4. ODOMZO [Suspect]
     Active Substance: SONIDEGIB
     Dosage: 1 DOSAGE FORM, 2/WEEK
     Route: 048
     Dates: start: 20240521, end: 20240812

REACTIONS (5)
  - Hallucination [Unknown]
  - Dizziness [Unknown]
  - Vomiting [Unknown]
  - Fatigue [Unknown]
  - Off label use [Unknown]
